FAERS Safety Report 12416059 (Version 1)
Quarter: 2016Q2

REPORT INFORMATION
  Report Type: Report from Study
  Country: US (occurrence: US)
  Receive Date: 20160530
  Receipt Date: 20160530
  Transmission Date: 20160815
  Serious: No
  Sender: FDA-Public Use
  Company Number: US-BIOVITRUM-2015US0664

PATIENT
  Age: 2 Year
  Sex: Male

DRUGS (1)
  1. ORFADIN [Suspect]
     Active Substance: NITISINONE
     Indication: AMINO ACID METABOLISM DISORDER
     Route: 048
     Dates: start: 20150811

REACTIONS (1)
  - Piloerection [Unknown]

NARRATIVE: CASE EVENT DATE: 201510
